FAERS Safety Report 8350447 (Version 2)
Quarter: 2013Q4

REPORT INFORMATION
  Report Type: Spontaneous
  Country: US (occurrence: US)
  Receive Date: 20120124
  Receipt Date: 20131204
  Transmission Date: 20140711
  Serious: Yes (Other)
  Sender: FDA-Public Use
  Company Number: US-BAYER-2012-004996

PATIENT
  Age: 32 Year
  Sex: Female

DRUGS (2)
  1. YAZ [Suspect]
     Dosage: UNK
     Dates: start: 20060420, end: 201005
  2. YASMIN [Suspect]
     Dosage: UNK
     Dates: start: 20060420, end: 201005

REACTIONS (3)
  - Cholecystectomy [None]
  - Cholecystitis chronic [None]
  - Injury [None]
